FAERS Safety Report 9249998 (Version 1)
Quarter: 2013Q2

REPORT INFORMATION
  Report Type: Report from Study
  Country: US (occurrence: US)
  Receive Date: 20130424
  Receipt Date: 20130424
  Transmission Date: 20140414
  Serious: Yes (Hospitalization)
  Sender: FDA-Public Use
  Company Number: US-ROCHE-1188649

PATIENT
  Age: 75 Year
  Sex: Female
  Weight: 65 kg

DRUGS (5)
  1. BEVACIZUMAB [Suspect]
     Indication: OVARIAN CANCER
     Dosage: OVER 30-90 MINS ON DAY 1 OF 21 DAYS CYCLE.LAST DOSE PRIOR TO SAE:30/NOV/2012
     Route: 042
     Dates: start: 20121019
  2. PACLITAXEL [Suspect]
     Indication: OVARIAN CANCER
     Dosage: 80 MG/M2 OVER 1 HOUR ON DAY 1, 8 AND 15 OF 21 DAYS CYCLE. LAST DOSE PRIOR TO SAE:07/DEC/2012
     Route: 042
     Dates: start: 20121019
  3. CARBOPLATIN [Suspect]
     Indication: OVARIAN CANCER
     Dosage: AUC=6 OVER 30 MINS ON DAY 1 OF 21 DAYS CYCLE. LAST DOSE PRIOR TO SAE:30/NOV/2012
     Route: 042
     Dates: start: 20121019
  4. VELIPARIB [Suspect]
     Indication: OVARIAN CANCER
     Dosage: ON DAYS 1-21 OF 21 DAYS CYCLE.LAST DOSE PRIOR TOS SAE:13/DEC/2012
     Route: 048
     Dates: start: 20121019
  5. HYDROCHLOROTHIAZIDE [Concomitant]

REACTIONS (6)
  - Syncope [Recovered/Resolved]
  - Hyponatraemia [Recovered/Resolved]
  - Anaemia [Recovered/Resolved]
  - Urinary tract obstruction [Recovered/Resolved with Sequelae]
  - Neutrophil count decreased [Recovered/Resolved with Sequelae]
  - Oesophagitis [Recovered/Resolved with Sequelae]
